FAERS Safety Report 13947855 (Version 1)
Quarter: 2017Q3

REPORT INFORMATION
  Report Type: Spontaneous
  Country: US (occurrence: US)
  Receive Date: 20170908
  Receipt Date: 20170908
  Transmission Date: 20171128
  Serious: Yes (Life-Threatening, Other)
  Sender: FDA-Public Use
  Company Number: US-ASTRAZENECA-2017SE90015

PATIENT
  Age: 15 Year
  Sex: Male
  Weight: 65.8 kg

DRUGS (9)
  1. TESTOSTERONE. [Suspect]
     Active Substance: TESTOSTERONE
     Indication: PUBERTY
     Dosage: LOW DOSE TESTOSTERONE FOR THREE MONTHS IN SPRING
     Route: 030
     Dates: start: 2016
  2. ARIPIPRAZOLE. [Concomitant]
     Active Substance: ARIPIPRAZOLE
  3. ONE-A-DAY NOS [Concomitant]
     Active Substance: MINERALS\VITAMINS
     Route: 048
  4. FOCALIN XR [Concomitant]
     Active Substance: DEXMETHYLPHENIDATE HYDROCHLORIDE
     Route: 048
  5. ANASTROZOLE. [Suspect]
     Active Substance: ANASTROZOLE
     Indication: ILL-DEFINED DISORDER
     Route: 048
     Dates: start: 201411
  6. TESTOSTERONE. [Suspect]
     Active Substance: TESTOSTERONE
     Indication: PUBERTY
     Route: 030
     Dates: start: 201411
  7. VITAMIN D3 [Concomitant]
     Active Substance: CHOLECALCIFEROL
     Route: 048
  8. GENOTROPIN [Concomitant]
     Active Substance: SOMATROPIN
  9. PRISTIQ EXTENDED-RELEASE [Concomitant]
     Active Substance: DESVENLAFAXINE SUCCINATE
     Route: 048

REACTIONS (3)
  - Drug dose omission [Unknown]
  - Overdose [Recovered/Resolved]
  - Suicide attempt [Recovered/Resolved]

NARRATIVE: CASE EVENT DATE: 2014
